FAERS Safety Report 18895578 (Version 1)
Quarter: 2021Q1

REPORT INFORMATION
  Report Type: Spontaneous
  Country: US (occurrence: US)
  Receive Date: 20210216
  Receipt Date: 20210216
  Transmission Date: 20210420
  Serious: No
  Sender: FDA-Public Use
  Company Number: US-SA-2021SA051249

PATIENT
  Age: 36 Year
  Sex: Male

DRUGS (5)
  1. QUINAPRIL. [Concomitant]
     Active Substance: QUINAPRIL
  2. DUPIXENT [Suspect]
     Active Substance: DUPILUMAB
     Indication: SINUS POLYP
  3. BUPROPION HCL [Concomitant]
     Active Substance: BUPROPION HYDROCHLORIDE
  4. DUPIXENT [Suspect]
     Active Substance: DUPILUMAB
     Indication: CHRONIC SINUSITIS
     Dosage: 300 MG, QOW
     Route: 058
     Dates: start: 20201010
  5. AMLODIPINE [Concomitant]
     Active Substance: AMLODIPINE BESYLATE

REACTIONS (1)
  - Product use in unapproved indication [Unknown]

NARRATIVE: CASE EVENT DATE: 20201010
